FAERS Safety Report 10271877 (Version 1)
Quarter: 2014Q3

REPORT INFORMATION
  Report Type: Spontaneous
  Country: US (occurrence: US)
  Receive Date: 20140702
  Receipt Date: 20140702
  Transmission Date: 20150326
  Serious: Yes (Other)
  Sender: FDA-Public Use
  Company Number: PHHY2014US078697

PATIENT
  Age: 40 Year
  Sex: Female
  Weight: 56.24 kg

DRUGS (3)
  1. THIAMAZOLE [Suspect]
     Active Substance: METHIMAZOLE
     Indication: BASEDOW^S DISEASE
     Dosage: 10 MG, BID
  2. THIAMAZOLE [Suspect]
     Active Substance: METHIMAZOLE
     Dosage: 10 MG, QD
  3. THIAMAZOLE [Suspect]
     Active Substance: METHIMAZOLE
     Dosage: 5 MG, QD

REACTIONS (9)
  - Pain [Recovered/Resolved]
  - Joint range of motion decreased [Recovered/Resolved]
  - Arthralgia [Recovered/Resolved]
  - Bone marrow oedema [Recovered/Resolved]
  - Joint swelling [Recovered/Resolved]
  - Exophthalmos [Recovered/Resolved]
  - Synovitis [Recovered/Resolved]
  - Arthritis [Recovered/Resolved]
  - Joint effusion [Recovered/Resolved]
